FAERS Safety Report 23574875 (Version 1)
Quarter: 2024Q1

REPORT INFORMATION
  Report Type: Spontaneous
  Country: US (occurrence: None)
  Receive Date: 20240227
  Receipt Date: 20240227
  Transmission Date: 20240410
  Serious: No
  Sender: FDA-Public Use
  Company Number: None

PATIENT
  Age: 4 Year
  Sex: Male
  Weight: 16.65 kg

DRUGS (1)
  1. YCANTH [Suspect]
     Active Substance: CANTHARIDIN
     Dates: start: 20240226, end: 20240226

REACTIONS (4)
  - Application site vesicles [None]
  - Skin reaction [None]
  - Pain [None]
  - Screaming [None]

NARRATIVE: CASE EVENT DATE: 20240226
